FAERS Safety Report 9842502 (Version 1)
Quarter: 2014Q1

REPORT INFORMATION
  Report Type: Spontaneous
  Country: US (occurrence: US)
  Receive Date: 20140124
  Receipt Date: 20140124
  Transmission Date: 20141002
  Serious: No
  Sender: FDA-Public Use
  Company Number: US-GILEAD-2011-0044532

PATIENT
  Age: 68 Year
  Sex: Male

DRUGS (2)
  1. RANEXA [Suspect]
     Indication: PRODUCT USED FOR UNKNOWN INDICATION
     Dosage: 500 MG, BID
     Dates: start: 2011
  2. RANEXA [Suspect]
     Dosage: 1000 MG, BID
     Dates: start: 2010, end: 2011

REACTIONS (2)
  - Liver function test abnormal [Unknown]
  - Constipation [Unknown]
